FAERS Safety Report 23982225 (Version 2)
Quarter: 2024Q2

REPORT INFORMATION
  Report Type: Spontaneous
  Country: US (occurrence: US)
  Receive Date: 20240617
  Receipt Date: 20240626
  Transmission Date: 20240716
  Serious: Yes (Death, Life-Threatening, Other)
  Sender: FDA-Public Use
  Company Number: US-PFIZER INC-PV202400077259

PATIENT
  Age: 72 Year
  Sex: Female

DRUGS (2)
  1. GEMCITABINE HYDROCHLORIDE [Suspect]
     Active Substance: GEMCITABINE HYDROCHLORIDE
     Indication: Ductal adenocarcinoma of pancreas
     Dosage: CYCLIC
  2. ABRAXANE [Suspect]
     Active Substance: PACLITAXEL
     Indication: Ductal adenocarcinoma of pancreas
     Dosage: CYCLIC

REACTIONS (4)
  - Gastritis bacterial [Fatal]
  - Septic shock [Unknown]
  - Encephalopathy [Unknown]
  - Gastric mucosal lesion [Unknown]
